FAERS Safety Report 8833756 (Version 3)
Quarter: 2014Q3

REPORT INFORMATION
  Report Type: Report from Study
  Country: US (occurrence: US)
  Receive Date: 20121010
  Receipt Date: 20140911
  Transmission Date: 20150326
  Serious: No
  Sender: FDA-Public Use
  Company Number: US-VERTEX PHARMACEUTICAL INC.-2012-019823

PATIENT
  Age: 24 Year
  Sex: Female

DRUGS (1)
  1. KALYDECO [Suspect]
     Active Substance: IVACAFTOR
     Indication: CYSTIC FIBROSIS
     Dosage: 150 MG, BID
     Route: 048
     Dates: start: 20120426

REACTIONS (6)
  - Pseudomonas infection [Unknown]
  - Wheezing [Unknown]
  - Cough [Unknown]
  - Nasal congestion [Unknown]
  - Aspergillus infection [Unknown]
  - Bronchospasm [Unknown]

NARRATIVE: CASE EVENT DATE: 201208
